FAERS Safety Report 16305965 (Version 4)
Quarter: 2022Q1

REPORT INFORMATION
  Report Type: Spontaneous
  Country: US (occurrence: None)
  Receive Date: 20190513
  Receipt Date: 20220323
  Transmission Date: 20220423
  Serious: Yes (Other)
  Sender: FDA-Public Use
  Company Number: 2019SE63711

PATIENT
  Age: 22180 Day
  Sex: Female
  Weight: 63.5 kg

DRUGS (43)
  1. NEXIUM [Suspect]
     Active Substance: ESOMEPRAZOLE MAGNESIUM
     Indication: Gastrooesophageal reflux disease
     Route: 048
     Dates: start: 20090608
  2. NEXIUM [Suspect]
     Active Substance: ESOMEPRAZOLE MAGNESIUM
     Indication: Gastrooesophageal reflux disease
     Route: 048
     Dates: start: 20090608
  3. NEXIUM 24HR [Suspect]
     Active Substance: ESOMEPRAZOLE MAGNESIUM
     Indication: Gastrooesophageal reflux disease
     Route: 048
  4. PRILOSEC [Suspect]
     Active Substance: OMEPRAZOLE MAGNESIUM
     Indication: Gastrooesophageal reflux disease
     Route: 048
  5. PRILOSEC [Suspect]
     Active Substance: OMEPRAZOLE MAGNESIUM
     Indication: Gastrooesophageal reflux disease
     Dosage: GENERIC
     Route: 065
     Dates: start: 20121008, end: 20130505
  6. PRILOSEC [Suspect]
     Active Substance: OMEPRAZOLE MAGNESIUM
     Indication: Gastrooesophageal reflux disease
     Dosage: GENERIC
     Route: 065
     Dates: start: 20130405
  7. PRILOSEC OTC [Suspect]
     Active Substance: OMEPRAZOLE MAGNESIUM
     Indication: Gastrooesophageal reflux disease
     Route: 048
  8. PREVACID [Suspect]
     Active Substance: LANSOPRAZOLE
     Indication: Gastrooesophageal reflux disease
     Route: 065
  9. PREVACID 24 HR [Suspect]
     Active Substance: LANSOPRAZOLE
     Indication: Gastrooesophageal reflux disease
     Route: 065
  10. PANTOPRAZOLE [Suspect]
     Active Substance: PANTOPRAZOLE
     Indication: Gastrooesophageal reflux disease
     Dosage: GENERIC
     Route: 065
     Dates: start: 20170726, end: 20170905
  11. LISINOPRIL [Concomitant]
     Active Substance: LISINOPRIL
     Dates: start: 201107, end: 201202
  12. ASPIRIN [Concomitant]
     Active Substance: ASPIRIN
     Indication: Pain
     Dosage: AS NEEDED
  13. ASPIRIN [Concomitant]
     Active Substance: ASPIRIN
     Indication: Pain
     Dosage: AS NEEDED
  14. BENADRYL [Concomitant]
     Active Substance: DIPHENHYDRAMINE HYDROCHLORIDE
     Indication: Sinus disorder
     Dosage: AS NEEDED
  15. CLONIDINE [Concomitant]
     Active Substance: CLONIDINE
  16. NIFEDIPINE [Concomitant]
     Active Substance: NIFEDIPINE
  17. BUPROPION [Concomitant]
     Active Substance: BUPROPION
  18. HYDROCODONE [Concomitant]
     Active Substance: HYDROCODONE
  19. METFORMIN [Concomitant]
     Active Substance: METFORMIN HYDROCHLORIDE
  20. CIPROFLOXACIN [Concomitant]
     Active Substance: CIPROFLOXACIN
  21. GABAPENTIN [Concomitant]
     Active Substance: GABAPENTIN
  22. UNSPECIFIED INGREDIENT [Concomitant]
     Active Substance: UNSPECIFIED INGREDIENT
  23. BENICAR [Concomitant]
     Active Substance: OLMESARTAN MEDOXOMIL
  24. ESTRADIOL [Concomitant]
     Active Substance: ESTRADIOL
  25. FUROSEMIDE [Concomitant]
     Active Substance: FUROSEMIDE
  26. METOPROLOL [Concomitant]
     Active Substance: METOPROLOL
  27. GLIPIZIDE [Concomitant]
     Active Substance: GLIPIZIDE
  28. RENVELA [Concomitant]
     Active Substance: SEVELAMER CARBONATE
  29. ATORVASTATIN [Concomitant]
     Active Substance: ATORVASTATIN
  30. IBUPROFEN [Concomitant]
     Active Substance: IBUPROFEN
  31. CLINDAMYCIN [Concomitant]
     Active Substance: CLINDAMYCIN
  32. ISOSORBIDE [Concomitant]
     Active Substance: ISOSORBIDE
  33. LYRICA [Concomitant]
     Active Substance: PREGABALIN
  34. AMLODIPINE [Concomitant]
     Active Substance: AMLODIPINE BESYLATE
  35. PROMETHAZINE [Concomitant]
     Active Substance: PROMETHAZINE HYDROCHLORIDE
  36. DICYCLOMINE [Concomitant]
     Active Substance: DICYCLOMINE HYDROCHLORIDE
  37. FLUOXETINE [Concomitant]
     Active Substance: FLUOXETINE HYDROCHLORIDE
  38. SENSIPAR [Concomitant]
     Active Substance: CINACALCET HYDROCHLORIDE
  39. ONDANSETRON [Concomitant]
     Active Substance: ONDANSETRON
  40. IRBESARTAN [Concomitant]
     Active Substance: IRBESARTAN
  41. CINACALCET [Concomitant]
     Active Substance: CINACALCET
  42. DICLOFENAC [Concomitant]
     Active Substance: DICLOFENAC
  43. ATORVASTATIN [Concomitant]
     Active Substance: ATORVASTATIN

REACTIONS (4)
  - Chronic kidney disease [Not Recovered/Not Resolved]
  - End stage renal disease [Unknown]
  - Acute kidney injury [Unknown]
  - Renal failure [Unknown]

NARRATIVE: CASE EVENT DATE: 20150228
